FAERS Safety Report 9990924 (Version 1)
Quarter: 2014Q1

REPORT INFORMATION
  Report Type: Report from Study
  Country: US (occurrence: US)
  Receive Date: 20140310
  Receipt Date: 20140310
  Transmission Date: 20141002
  Serious: No
  Sender: FDA-Public Use
  Company Number: US-ABBVIE-13P-163-1132818-00

PATIENT
  Age: 56 Year
  Sex: Female

DRUGS (10)
  1. HUMIRA [Suspect]
     Indication: COLITIS ULCERATIVE
     Dates: start: 20130802, end: 20130802
  2. HUMIRA [Suspect]
  3. ASACOL HD [Concomitant]
     Indication: COLITIS ULCERATIVE
  4. HYOSCYAMINE [Concomitant]
     Indication: COLITIS ULCERATIVE
  5. ENTOCORT [Concomitant]
     Indication: COLITIS ULCERATIVE
  6. PREDNISONE [Concomitant]
     Indication: COLITIS ULCERATIVE
     Dosage: 20MG DAILY
  7. LISINOPRIL [Concomitant]
     Indication: BLOOD PRESSURE MANAGEMENT
  8. AMLODIPINE BESYLATE [Concomitant]
     Indication: HYPERTENSION
     Dosage: 5MG DAILY
  9. PENTOXIFYLLINE [Concomitant]
     Indication: RASH
  10. TRIAMCINOLONE [Concomitant]
     Indication: RASH
     Dosage: DAILY
     Route: 061

REACTIONS (1)
  - Injection site pain [Recovered/Resolved]
